FAERS Safety Report 8043159-X (Version None)
Quarter: 2012Q1

REPORT INFORMATION
  Report Type: 
  Country: None (occurrence: None)
  Receive Date: 20120112
  Receipt Date: 20111228
  Transmission Date: 20120608
  Serious: Yes (Death)
  Sender: FDA-Public Use
  Company Number: US-UCBSA-049117

PATIENT
  Age: 27 Year
  Sex: Male

DRUGS (4)
  1. ACETAMINOPHEN AND OXYCODONE HCL [Suspect]
  2. CARISOPRODOL [Suspect]
  3. METHADONE HCL [Suspect]
  4. ALPRAZOLAM [Suspect]
     Route: 048

REACTIONS (1)
  - TOXICITY TO VARIOUS AGENTS [None]
